FAERS Safety Report 11047941 (Version 1)
Quarter: 2015Q2

REPORT INFORMATION
  Report Type: Spontaneous
  Country: US (occurrence: None)
  Receive Date: 20150417
  Receipt Date: 20150417
  Transmission Date: 20150821
  Serious: Yes (Life-Threatening)
  Sender: FDA-Public Use
  Company Number: None

PATIENT
  Age: 23 Day
  Weight: 58.97 kg

DRUGS (7)
  1. BLOOD PRESSURE CUFF [Concomitant]
  2. DIPHENHYDRAMINE [Suspect]
     Active Substance: DIPHENHYDRAMINE
     Dosage: 1-2 CAPSULE EVERY 4-6 HOURS
     Route: 048
     Dates: start: 20150411
  3. ACETAMINOPHEN AND CODEINE [Suspect]
     Active Substance: ACETAMINOPHEN\CODEINE PHOSPHATE
     Indication: HYPERSENSITIVITY
     Dosage: 2PILLS
     Route: 048
     Dates: start: 20150411, end: 20150411
  4. ACETAMINOPHEN AND CODEINE [Suspect]
     Active Substance: ACETAMINOPHEN\CODEINE PHOSPHATE
     Indication: HEADACHE
     Dosage: 2PILLS
     Route: 048
     Dates: start: 20150411, end: 20150411
  5. ACETAMINOPHEN AND CODEINE [Suspect]
     Active Substance: ACETAMINOPHEN\CODEINE PHOSPHATE
     Indication: SINUS DISORDER
     Dosage: 2PILLS
     Route: 048
     Dates: start: 20150411, end: 20150411
  6. CHLORPHENIRAMINE MALEATE. [Suspect]
     Active Substance: CHLORPHENIRAMINE MALEATE
  7. PHENYLEPHRINE [Suspect]
     Active Substance: PHENYLEPHRINE\PHENYLEPHRINE HYDROCHLORIDE

REACTIONS (6)
  - Hypersensitivity [None]
  - Swelling face [None]
  - Palpitations [None]
  - Blood pressure increased [None]
  - Dyspepsia [None]
  - Feeling abnormal [None]

NARRATIVE: CASE EVENT DATE: 20150412
